FAERS Safety Report 4534524-3 (Version None)
Quarter: 2004Q4

REPORT INFORMATION
  Report Type: 
  Country: None (occurrence: None)
  Receive Date: 20041214
  Receipt Date: 20041015
  Transmission Date: 20050328
  Serious: No
  Sender: FDA-Public Use
  Company Number: 2004240982US

PATIENT
  Sex: Female
  Weight: 78.5 kg

DRUGS (1)
  1. BEXTRA [Suspect]
     Dosage: 10 MG
     Dates: start: 20040201, end: 20041014

REACTIONS (3)
  - DRUG INEFFECTIVE [None]
  - RED BLOOD CELL SEDIMENTATION RATE INCREASED [None]
  - SWELLING [None]
